FAERS Safety Report 5347790-1 (Version None)
Quarter: 2007Q2

REPORT INFORMATION
  Report Type: 
  Country: None (occurrence: None)
  Receive Date: 20070516
  Receipt Date: 20070208
  Transmission Date: 20071010
  Serious: No
  Sender: FDA-Public Use
  Company Number: SPV1-2007-00673

PATIENT
  Age: 66 Year
  Sex: Female
  Weight: 68 kg

DRUGS (11)
  1. FOSRENOL [Suspect]
     Indication: HYPERPHOSPHATAEMIA
     Dosage: 1000 MG, 3X/DAY;TID, ORAL
     Route: 048
     Dates: start: 20061201, end: 20070201
  2. HUMAN 70/30 (INSULIN HUMAN, INSULIN HUMAN INJECTION, ISOPHANE) [Concomitant]
  3. ASPIRIN [Concomitant]
  4. DIOVAN [Concomitant]
  5. TOPROL-XL [Concomitant]
  6. CARDIZEM [Concomitant]
  7. LIPITOR [Concomitant]
  8. TOPAMAX (TOPAMAX (TOPIRAMATE) [Concomitant]
  9. DILANTIN [Concomitant]
  10. COLACE (DOCUSATE SODIUM) [Concomitant]
  11. PLAVIX [Concomitant]

REACTIONS (3)
  - FLATULENCE [None]
  - PHOSPHORUS METABOLISM DISORDER [None]
  - SLEEP DISORDER [None]
